FAERS Safety Report 6801199-X (Version None)
Quarter: 2010Q2

REPORT INFORMATION
  Report Type: 
  Country: None (occurrence: None)
  Receive Date: 20100629
  Receipt Date: 20100617
  Transmission Date: 20101027
  Serious: Yes (Hospitalization)
  Sender: FDA-Public Use
  Company Number: US-PFIZER INC-2010075533

PATIENT
  Sex: Male
  Weight: 77.5 kg

DRUGS (12)
  1. BLINDED *NO SUBJECT DRUG [Suspect]
     Indication: PROSTATE CANCER
     Dosage: 50 MG, 1X/DAY
     Route: 048
     Dates: start: 20100301, end: 20100613
  2. BLINDED *PLACEBO [Suspect]
     Indication: PROSTATE CANCER
     Dosage: 50 MG, 1X/DAY
     Route: 048
     Dates: start: 20100301, end: 20100613
  3. SUNITINIB MALATE [Suspect]
     Indication: PROSTATE CANCER
     Dosage: 50 MG, 1X/DAY
     Route: 048
     Dates: start: 20100301, end: 20100613
  4. PREDNISONE [Suspect]
     Indication: PROSTATE CANCER
     Dosage: 5 MG, 2X/DAY
     Route: 048
     Dates: start: 20100301
  5. LUPRON [Concomitant]
     Indication: HORMONE SUPPRESSION THERAPY
     Dosage: 22.5 MG, EVERY 3 MONTHS
     Route: 030
     Dates: start: 20050101
  6. VICODIN [Concomitant]
     Indication: PAIN
     Dosage: 5/500 EVERY 4 HOUR, PRN
     Route: 048
     Dates: start: 20100117
  7. PRIMIDONE [Concomitant]
     Indication: TREMOR
     Dosage: 50 MG, 3X/DAY
     Route: 048
  8. VITAMIN D [Concomitant]
     Indication: VITAMIN SUPPLEMENTATION
     Dosage: 2000 U, 1X/DAY
     Route: 048
     Dates: start: 20090101, end: 20100613
  9. MS CONTIN [Concomitant]
     Indication: PAIN
     Dosage: 15 MG, 2X/DAY
     Route: 048
     Dates: start: 20100301, end: 20100613
  10. COMPAZINE [Concomitant]
     Indication: NAUSEA
     Dosage: 10 MG, EVERY 6 HOURS AS NEEDED
     Route: 048
     Dates: start: 20100322, end: 20100613
  11. ARANESP [Concomitant]
     Indication: ANAEMIA
     Dosage: PRN
     Route: 058
     Dates: start: 20100428, end: 20100613
  12. ZOFRAN [Concomitant]
     Indication: NAUSEA
     Dosage: 8 MG, AS NEEDED
     Route: 048
     Dates: start: 20100412

REACTIONS (4)
  - ASTHENIA [None]
  - BLOOD CREATINE PHOSPHOKINASE INCREASED [None]
  - FALL [None]
  - PYREXIA [None]
